FAERS Safety Report 5165839-6 (Version None)
Quarter: 2006Q4

REPORT INFORMATION
  Report Type: 
  Country: None (occurrence: None)
  Receive Date: 20061128
  Receipt Date: 20061114
  Transmission Date: 20070319
  Serious: Yes (Other)
  Sender: FDA-Public Use
  Company Number: 15056

PATIENT
  Age: 45 Year
  Sex: Male

DRUGS (5)
  1. HALOPERIDOL [Suspect]
     Indication: SCHIZOPHRENIA, PARANOID TYPE
     Dosage: 2.5 MG TID UNK
  2. HALOPERIDOL [Suspect]
     Indication: SCHIZOPHRENIA, PARANOID TYPE
     Dosage: 5 MG TID UNK
  3. QUETIAPINE FUMARATE [Suspect]
     Indication: SCHIZOPHRENIA, PARANOID TYPE
     Dosage: 25 MG BID UNK
  4. QUESTIAPINE [Suspect]
     Indication: SCHIZOPHRENIA, PARANOID TYPE
     Dosage: 150 MG BID UNK
  5. MIDAZOLAM HYDROCHLORIDE [Concomitant]

REACTIONS (12)
  - ANXIETY [None]
  - COMPLICATED FRACTURE [None]
  - CONTUSION [None]
  - FALL [None]
  - INAPPROPRIATE ANTIDIURETIC HORMONE SECRETION [None]
  - MENTAL DISORDER [None]
  - RADIUS FRACTURE [None]
  - RIB FRACTURE [None]
  - SPINAL FRACTURE [None]
  - SUICIDAL IDEATION [None]
  - SUSPICIOUSNESS [None]
  - WRIST FRACTURE [None]
